FAERS Safety Report 9343802 (Version 3)
Quarter: 2013Q3

REPORT INFORMATION
  Report Type: Report from Study
  Country: NO (occurrence: NO)
  Receive Date: 20130612
  Receipt Date: 20130813
  Transmission Date: 20140515
  Serious: Yes (Death, Hospitalization, Other)
  Sender: FDA-Public Use
  Company Number: NO-ACCORD-017964

PATIENT
  Age: 58 Year
  Sex: Female

DRUGS (6)
  1. DOCETAXEL [Suspect]
     Indication: BREAST CANCER
     Dosage: FOUR COURSES
     Route: 042
  2. PEGFILGRASTIM [Concomitant]
     Indication: PRODUCT USED FOR UNKNOWN INDICATION
     Dosage: 6 MG PER DAY
     Route: 058
  3. EPIRUBICIN [Concomitant]
     Indication: BREAST CANCER
     Dosage: FOUR COURSES
     Route: 042
  4. DEXAMETHASONE [Concomitant]
     Indication: PRODUCT USED FOR UNKNOWN INDICATION
  5. APREPITANT [Concomitant]
     Indication: PRODUCT USED FOR UNKNOWN INDICATION
  6. ONDANSETRON [Concomitant]
     Indication: PRODUCT USED FOR UNKNOWN INDICATION

REACTIONS (4)
  - Interstitial lung disease [Fatal]
  - Pulmonary fibrosis [Fatal]
  - Palmar-plantar erythrodysaesthesia syndrome [Unknown]
  - Respiratory failure [Fatal]
